FAERS Safety Report 15736516 (Version 4)
Quarter: 2021Q1

REPORT INFORMATION
  Report Type: Report from Study
  Country: JP (occurrence: JP)
  Receive Date: 20181218
  Receipt Date: 20210309
  Transmission Date: 20210419
  Serious: Yes (Hospitalization)
  Sender: FDA-Public Use
  Company Number: JP-PFIZER INC-2018514779

PATIENT
  Age: 64 Year
  Sex: Female
  Weight: 40.2 kg

DRUGS (3)
  1. BESPONSA [Suspect]
     Active Substance: INOTUZUMAB OZOGAMICIN
     Dosage: 0.5 MG/M2, UNK
     Route: 041
     Dates: start: 20181005, end: 20181005
  2. BESPONSA [Suspect]
     Active Substance: INOTUZUMAB OZOGAMICIN
     Indication: ACUTE LYMPHOCYTIC LEUKAEMIA RECURRENT
     Dosage: 0.8 MG/M2, UNK
     Route: 041
     Dates: start: 20180928, end: 20180928
  3. BESPONSA [Suspect]
     Active Substance: INOTUZUMAB OZOGAMICIN
     Dosage: 0.5 MG/M2, UNK
     Route: 041
     Dates: start: 20181012, end: 20181012

REACTIONS (2)
  - Ascites [Recovering/Resolving]
  - Pleural effusion [Not Recovered/Not Resolved]
